FAERS Safety Report 16394091 (Version 3)
Quarter: 2019Q3

REPORT INFORMATION
  Report Type: Spontaneous
  Country: IT (occurrence: IT)
  Receive Date: 20190605
  Receipt Date: 20190708
  Transmission Date: 20191004
  Serious: Yes (Hospitalization, Other)
  Sender: FDA-Public Use
  Company Number: IT-PFIZER INC-2019233657

PATIENT
  Age: 68 Year
  Sex: Female
  Weight: 122 kg

DRUGS (6)
  1. DEURSIL [Concomitant]
     Active Substance: URSODIOL
     Dosage: UNK
  2. FOLINA [CALCIUM FOLINATE] [Concomitant]
     Active Substance: LEUCOVORIN CALCIUM
     Dosage: UNK
  3. MEROPENEM HIKMA [Suspect]
     Active Substance: MEROPENEM
     Indication: PSEUDOMONAS INFECTION
     Dosage: 6 G, 1X/DAY
     Route: 042
     Dates: start: 20190410, end: 20190430
  4. ROCALTROL [Concomitant]
     Active Substance: CALCITRIOL
     Dosage: UNK
  5. TYGACIL [Suspect]
     Active Substance: TIGECYCLINE
     Indication: PSEUDOMONAS INFECTION
     Dosage: 200 MG, 1X/DAY
     Route: 042
     Dates: start: 20190410, end: 20190430
  6. CANESTEN [Concomitant]
     Active Substance: CLOTRIMAZOLE
     Dosage: UNK

REACTIONS (6)
  - Gamma-glutamyltransferase increased [Recovering/Resolving]
  - Liver injury [Recovering/Resolving]
  - Cholestasis [Recovering/Resolving]
  - Transaminases increased [Recovering/Resolving]
  - Blood alkaline phosphatase increased [Recovering/Resolving]
  - Off label use [Unknown]

NARRATIVE: CASE EVENT DATE: 20190410
